FAERS Safety Report 10215913 (Version 2)
Quarter: 2014Q3

REPORT INFORMATION
  Report Type: Spontaneous
  Country: AU (occurrence: AU)
  Receive Date: 20140604
  Receipt Date: 20140827
  Transmission Date: 20150326
  Serious: Yes (Other)
  Sender: FDA-Public Use
  Company Number: AU-AMGEN-AUSSP2014039833

PATIENT
  Age: 65 Year
  Sex: Female

DRUGS (4)
  1. PROLIA [Suspect]
     Active Substance: DENOSUMAB
     Indication: OSTEOPOROSIS POSTMENOPAUSAL
     Dosage: 60 MG, Q6MO
     Route: 058
     Dates: start: 201308
  2. CITRACAL                           /00751520/ [Concomitant]
     Dosage: 2 DAILY
  3. COVERSYL PLUS                      /01421201/ [Concomitant]
     Dosage: 5 / 1.25 DAILY
  4. CRESTOR [Concomitant]
     Active Substance: ROSUVASTATIN CALCIUM
     Dosage: 5 MG DAILY

REACTIONS (3)
  - Polymyalgia rheumatica [Unknown]
  - Tendonitis [Unknown]
  - Pain [Unknown]
